FAERS Safety Report 6268060-3 (Version None)
Quarter: 2009Q3

REPORT INFORMATION
  Report Type: 
  Country: None (occurrence: None)
  Receive Date: 20090713
  Receipt Date: 20090629
  Transmission Date: 20100115
  Serious: Yes (Hospitalization)
  Sender: FDA-Public Use
  Company Number: A-CH2009-26103

PATIENT
  Age: 77 Year
  Sex: Male

DRUGS (2)
  1. TRACLEER [Suspect]
     Indication: PULMONARY ARTERIAL HYPERTENSION
     Dosage: 62.5 MG, BID, ORAL 125 MG, BID, ORAL
     Route: 048
     Dates: end: 20080626
  2. TRACLEER [Suspect]
     Indication: PULMONARY ARTERIAL HYPERTENSION
     Dosage: 62.5 MG, BID, ORAL 125 MG, BID, ORAL
     Route: 048
     Dates: start: 20080423

REACTIONS (4)
  - CYTOLYTIC HEPATITIS [None]
  - DRUG TOXICITY [None]
  - HEPATIC ISCHAEMIA [None]
  - RIGHT VENTRICULAR FAILURE [None]
